FAERS Safety Report 4837234-8 (Version None)
Quarter: 2005Q4

REPORT INFORMATION
  Report Type: 
  Country: None (occurrence: None)
  Receive Date: 20051127
  Receipt Date: 20051116
  Transmission Date: 20060501
  Serious: Yes (Congenital Anomaly)
  Sender: FDA-Public Use
  Company Number: GB-ABBOTT-05P-167-0317417-00

PATIENT
  Sex: Female

DRUGS (1)
  1. EPILIM CHRONO TABLETS [Suspect]
     Indication: EPILEPSY

REACTIONS (28)
  - BONE DEVELOPMENT ABNORMAL [None]
  - CAMPTODACTYLY CONGENITAL [None]
  - CLEFT PALATE [None]
  - CLEFT UVULA [None]
  - COGNITIVE DISORDER [None]
  - CONGENITAL BOWING OF LONG BONES [None]
  - CONGENITAL CLAW TOE [None]
  - CONGENITAL EYE DISORDER [None]
  - CONGENITAL FOOT MALFORMATION [None]
  - CONGENITAL HAND MALFORMATION [None]
  - CONGENITAL MUSCULOSKELETAL ANOMALY [None]
  - CONGENITAL NOSE MALFORMATION [None]
  - DACRYOSTENOSIS CONGENITAL [None]
  - DEVELOPMENTAL DELAY [None]
  - DRUG EXPOSURE DURING PREGNANCY [None]
  - EAR MALFORMATION [None]
  - FACIAL DYSMORPHISM [None]
  - FEEDING DISORDER NEONATAL [None]
  - FOETAL VALPROATE SYNDROME [None]
  - HYPERTELORISM OF ORBIT [None]
  - HYPOTONIA [None]
  - JOINT DISLOCATION [None]
  - LEARNING DISORDER [None]
  - LOW SET EARS [None]
  - MUSCLE CONTRACTIONS INVOLUNTARY [None]
  - SCOLIOSIS [None]
  - SPEECH DISORDER DEVELOPMENTAL [None]
  - TALIPES [None]
